FAERS Safety Report 6516872-0 (Version None)
Quarter: 2009Q4

REPORT INFORMATION
  Report Type: 
  Country: None (occurrence: None)
  Receive Date: 20091223
  Receipt Date: 20091210
  Transmission Date: 20100525
  Serious: Yes (Hospitalization)
  Sender: FDA-Public Use
  Company Number: SE-PFIZER INC-2009308166

PATIENT
  Age: 19 Year

DRUGS (2)
  1. LYRICA [Suspect]
     Indication: PANIC ATTACK
     Dosage: 13 G, UNK
     Route: 048
     Dates: start: 20091022, end: 20091022
  2. SOBRIL [Concomitant]
     Dosage: UNK

REACTIONS (3)
  - DRUG TOXICITY [None]
  - FEELING ABNORMAL [None]
  - OVERDOSE [None]
